FAERS Safety Report 10935070 (Version 2)
Quarter: 2015Q1

REPORT INFORMATION
  Report Type: Spontaneous
  Country: US (occurrence: US)
  Receive Date: 20150320
  Receipt Date: 20150325
  Transmission Date: 20150721
  Serious: Yes (Other)
  Sender: FDA-Public Use
  Company Number: PHHY2015US030290

PATIENT
  Age: 27 Year
  Sex: Male

DRUGS (4)
  1. PREDNISONE. [Suspect]
     Active Substance: PREDNISONE
     Dosage: 40 MG, QD
     Route: 065
  2. HYDROXYCHLOROQUINE [Suspect]
     Active Substance: HYDROXYCHLOROQUINE
     Indication: CUTANEOUS SARCOIDOSIS
     Dosage: 400 MG, QD
     Route: 065
  3. PREDNISONE. [Suspect]
     Active Substance: PREDNISONE
     Indication: CUTANEOUS SARCOIDOSIS
     Dosage: 40 MG, QD
     Route: 065
  4. METHOTREXATE [Suspect]
     Active Substance: METHOTREXATE
     Indication: CUTANEOUS SARCOIDOSIS
     Dosage: 10 MG, QW
     Route: 065

REACTIONS (8)
  - Cough [Unknown]
  - Tuberculoid leprosy [Recovering/Resolving]
  - Pain [Unknown]
  - Skin plaque [Recovering/Resolving]
  - Skin ulcer [Recovered/Resolved]
  - Skin lesion [Recovering/Resolving]
  - Paraesthesia [Unknown]
  - Mycobacterial infection [Recovering/Resolving]
